FAERS Safety Report 16828555 (Version 9)
Quarter: 2021Q1

REPORT INFORMATION
  Report Type: Report from Study
  Country: US (occurrence: US)
  Receive Date: 20190919
  Receipt Date: 20210129
  Transmission Date: 20210419
  Serious: Yes (Hospitalization, Other)
  Sender: FDA-Public Use
  Company Number: PHEH2019US038556

PATIENT
  Age: 72 Year
  Sex: Female

DRUGS (1)
  1. GLEEVEC [Suspect]
     Active Substance: IMATINIB MESYLATE
     Indication: PRODUCT USED FOR UNKNOWN INDICATION
     Dosage: UNK
     Route: 065
     Dates: start: 20170101, end: 20191230

REACTIONS (14)
  - Subdural haemorrhage [Recovered/Resolved]
  - Lymph gland infection [Unknown]
  - Amnesia [Unknown]
  - Cyst [Unknown]
  - Cerebral haemorrhage [Unknown]
  - Fall [Unknown]
  - Skin haemorrhage [Unknown]
  - Swelling [Unknown]
  - Asthenia [Unknown]
  - Heart rate increased [Unknown]
  - Depressed mood [Unknown]
  - Gastroenteritis viral [Unknown]
  - Muscular weakness [Unknown]
  - Malaise [Unknown]

NARRATIVE: CASE EVENT DATE: 2017
